FAERS Safety Report 6737026-9 (Version None)
Quarter: 2010Q2

REPORT INFORMATION
  Report Type: 
  Country: None (occurrence: None)
  Receive Date: 20100523
  Receipt Date: 20090925
  Transmission Date: 20101027
  Serious: No
  Sender: FDA-Public Use
  Company Number: US-ALLERGAN-0913426US

PATIENT
  Sex: Female

DRUGS (1)
  1. ZYMAR [Suspect]
     Indication: CONJUNCTIVITIS
     Dosage: 1 GTT, QID
     Route: 047
     Dates: start: 20090921, end: 20090925

REACTIONS (3)
  - EYE IRRITATION [None]
  - LACRIMATION INCREASED [None]
  - OCULAR HYPERAEMIA [None]
